FAERS Safety Report 7288035-5 (Version None)
Quarter: 2011Q1

REPORT INFORMATION
  Report Type: 
  Country: None (occurrence: None)
  Receive Date: 20110211
  Receipt Date: 20110201
  Transmission Date: 20110831
  Serious: Yes (Hospitalization)
  Sender: FDA-Public Use
  Company Number: PHHY2009CA19626

PATIENT
  Sex: Male

DRUGS (2)
  1. SANDOSTATIN LAR [Suspect]
     Dosage: 30 MG, QMO
     Route: 030
  2. SANDOSTATIN LAR [Suspect]
     Indication: ACROMEGALY
     Dosage: 30 MG EVERY 3 WEEKS
     Route: 030
     Dates: start: 19990901

REACTIONS (8)
  - PELVIC FRACTURE [None]
  - FALL [None]
  - ASTHENIA [None]
  - INJECTION SITE PAIN [None]
  - BLOOD PRESSURE SYSTOLIC INCREASED [None]
  - ABASIA [None]
  - HIP FRACTURE [None]
  - UPPER LIMB FRACTURE [None]
